FAERS Safety Report 8158158-7 (Version None)
Quarter: 2012Q1

REPORT INFORMATION
  Report Type: 
  Country: None (occurrence: None)
  Receive Date: 20120222
  Receipt Date: 20120213
  Transmission Date: 20120608
  Serious: Yes (Hospitalization, Disabling)
  Sender: FDA-Public Use
  Company Number: BR-ASTRAZENECA-2011SE59795

PATIENT
  Age: 72 Year
  Sex: Male

DRUGS (11)
  1. ATACAND [Suspect]
     Route: 048
     Dates: start: 20110601, end: 20110801
  2. ATENOLOL [Concomitant]
     Dosage: UP TO TID PRN
     Route: 048
     Dates: start: 20020101
  3. SIMVASTATIN [Concomitant]
     Route: 048
     Dates: start: 20020101
  4. SOMALGIN CARDIO [Concomitant]
     Route: 048
     Dates: start: 20020101
  5. ISOSORBIDE MONONITRATE [Concomitant]
     Dosage: BID
     Route: 048
     Dates: start: 20020101
  6. ATENOLOL [Concomitant]
     Dosage: BID
     Route: 048
     Dates: start: 20020101
  7. ISORDIL [Concomitant]
     Route: 048
     Dates: start: 20110601
  8. ATACAND HCT [Suspect]
     Dosage: 16/12.5 MG
     Route: 048
     Dates: start: 20020101, end: 20110801
  9. CAPTOPRIL [Concomitant]
     Route: 048
  10. ATACAND HCT [Suspect]
     Dosage: 16/12.5 MG
     Route: 048
  11. CLONAZEPAM [Concomitant]
     Route: 048
     Dates: start: 20020101

REACTIONS (8)
  - CEREBROVASCULAR ACCIDENT [None]
  - VENOUS OCCLUSION [None]
  - DYSPNOEA [None]
  - HEMIPLEGIA [None]
  - DYSPHONIA [None]
  - DRUG DOSE OMISSION [None]
  - CHEST PAIN [None]
  - FATIGUE [None]
